FAERS Safety Report 6458980-9 (Version None)
Quarter: 2009Q4

REPORT INFORMATION
  Report Type: 
  Country: None (occurrence: None)
  Receive Date: 20091125
  Receipt Date: 20091125
  Transmission Date: 20100525
  Serious: No
  Sender: FDA-Public Use
  Company Number: None

PATIENT
  Age: 56 Year
  Sex: Female
  Weight: 124.7392 kg

DRUGS (2)
  1. EC-NAPROSYN [Suspect]
     Indication: ARTHRITIS
     Dosage: 1 TABLET TWICE MOUTH
     Route: 048
     Dates: start: 20090619, end: 20091030
  2. EC-NAPROSYN [Suspect]
     Indication: INFLAMMATION
     Dosage: 1 TABLET TWICE MOUTH
     Route: 048
     Dates: start: 20090619, end: 20091030

REACTIONS (2)
  - MUSCULAR WEAKNESS [None]
  - PAIN IN EXTREMITY [None]
